FAERS Safety Report 11464236 (Version 1)
Quarter: 2015Q3

REPORT INFORMATION
  Report Type: Spontaneous
  Country: US (occurrence: US)
  Receive Date: 20150831
  Receipt Date: 20150831
  Transmission Date: 20151125
  Serious: No
  Sender: FDA-Public Use
  Company Number: US-ELI_LILLY_AND_COMPANY-US201107005850

PATIENT
  Sex: Male

DRUGS (3)
  1. CYMBALTA [Suspect]
     Active Substance: DULOXETINE HYDROCHLORIDE
     Dosage: 20 MG, QD
  2. CYMBALTA [Suspect]
     Active Substance: DULOXETINE HYDROCHLORIDE
     Indication: MUSCULOSKELETAL PAIN
     Dosage: 30 MG, QD
     Dates: start: 20110624
  3. ANALGESICS [Concomitant]
     Active Substance: UNSPECIFIED INGREDIENT

REACTIONS (6)
  - Mental impairment [Unknown]
  - Wrong technique in product usage process [Unknown]
  - Impaired reasoning [Unknown]
  - Insomnia [Not Recovered/Not Resolved]
  - Memory impairment [Unknown]
  - Anxiety [Unknown]
